FAERS Safety Report 5171645-9 (Version None)
Quarter: 2006Q4

REPORT INFORMATION
  Report Type: 
  Country: None (occurrence: None)
  Receive Date: 20061213
  Receipt Date: 20061207
  Transmission Date: 20070319
  Serious: Yes (Congenital Anomaly, Other)
  Sender: FDA-Public Use
  Company Number: DE-BRISTOL-MYERS SQUIBB COMPANY-13608245

PATIENT
  Sex: Male

DRUGS (7)
  1. ABILIFY [Suspect]
     Dosage: REDUCED TO 15 MG DAILY ON 21-MAR-2006
     Route: 064
  2. ZOLOFT [Suspect]
     Route: 064
     Dates: end: 20060308
  3. DIPIPERON [Suspect]
     Route: 064
     Dates: end: 20060308
  4. HALDOL [Suspect]
     Route: 064
  5. FOLCUR [Concomitant]
     Route: 064
     Dates: end: 20060308
  6. JODID [Concomitant]
     Route: 064
     Dates: end: 20060301
  7. CIGARETTES [Concomitant]
     Route: 064

REACTIONS (5)
  - ARNOLD-CHIARI MALFORMATION [None]
  - CAESAREAN SECTION [None]
  - DRUG EXPOSURE DURING PREGNANCY [None]
  - MENINGOMYELOCELE [None]
  - SPINA BIFIDA [None]
